FAERS Safety Report 11982015 (Version 2)
Quarter: 2016Q3

REPORT INFORMATION
  Report Type: Spontaneous
  Country: US (occurrence: US)
  Receive Date: 20160201
  Receipt Date: 20160908
  Transmission Date: 20161109
  Serious: No
  Sender: FDA-Public Use
  Company Number: US-BRISTOL-MYERS SQUIBB COMPANY-BMS-2016-006812

PATIENT
  Sex: Male

DRUGS (2)
  1. SPRYCEL [Suspect]
     Active Substance: DASATINIB
     Dosage: 20 MG, UNK(EVERY 3 DAYS)
     Route: 048
     Dates: start: 20151212
  2. SPRYCEL [Suspect]
     Active Substance: DASATINIB
     Indication: CHRONIC MYELOID LEUKAEMIA
     Dosage: 20 MG, UNK(EVERY OTHER DAY )
     Route: 065
     Dates: start: 20150805

REACTIONS (2)
  - Prescribed underdose [Unknown]
  - Thinking abnormal [Unknown]
